FAERS Safety Report 13286954 (Version 3)
Quarter: 2017Q1

REPORT INFORMATION
  Report Type: Spontaneous
  Country: FR (occurrence: FR)
  Receive Date: 20170302
  Receipt Date: 20170322
  Transmission Date: 20170428
  Serious: Yes (Hospitalization, Other)
  Sender: FDA-Public Use
  Company Number: FR-BAXTER-2017BAX007710

PATIENT
  Age: 62 Year
  Sex: Female

DRUGS (45)
  1. DEXAMETHASONE. [Suspect]
     Active Substance: DEXAMETHASONE
     Dosage: DAY1
     Route: 048
     Dates: start: 20161222, end: 20161222
  2. DEXAMETHASONE. [Suspect]
     Active Substance: DEXAMETHASONE
     Dosage: DAY15
     Route: 048
     Dates: start: 20170111, end: 20170111
  3. NEODEX [Suspect]
     Active Substance: DEXAMETHASONE\NEOMYCIN
     Indication: PLASMA CELL MYELOMA
     Dosage: 8 COURSES
     Route: 065
     Dates: end: 201301
  4. AMLOR [Concomitant]
     Active Substance: AMLODIPINE BESYLATE
     Indication: PRODUCT USED FOR UNKNOWN INDICATION
     Route: 048
  5. LEVOTHYROX [Concomitant]
     Active Substance: LEVOTHYROXINE
     Indication: PRODUCT USED FOR UNKNOWN INDICATION
     Dosage: DOSAGE FORM: SCORED TABLET
     Route: 048
  6. MOPRAL [Concomitant]
     Active Substance: OMEPRAZOLE SODIUM
     Indication: PRODUCT USED FOR UNKNOWN INDICATION
     Dosage: DOSAGE FORM: GASTRORESISTENT TABLET
     Route: 048
  7. SERETIDE [Concomitant]
     Active Substance: FLUTICASONE PROPIONATE\SALMETEROL XINAFOATE
     Indication: PRODUCT USED FOR UNKNOWN INDICATION
     Dosage: DOSAGE FORM: SUSPENSION FOR INHALATION IN VIAL, FORM STRENGTH: 125/25 MICROGRAM, DOSE: 125/25 MICROG
     Route: 048
  8. SODIUM BICARBONATE. [Concomitant]
     Active Substance: SODIUM BICARBONATE
     Indication: PRODUCT USED FOR UNKNOWN INDICATION
     Route: 048
  9. ENDOXAN 50 MG, COMPRIM? ENROB? [Suspect]
     Active Substance: CYCLOPHOSPHAMIDE
     Dosage: DAY1
     Route: 048
     Dates: start: 20161222, end: 20161222
  10. ENDOXAN 1000 MG, POUDRE POUR SOLUTION INJECTABLE [Suspect]
     Active Substance: CYCLOPHOSPHAMIDE
     Indication: PLASMA CELL MYELOMA
     Dosage: 3 COURSES
     Route: 065
     Dates: end: 201402
  11. DEXAMETHASONE. [Suspect]
     Active Substance: DEXAMETHASONE
     Dosage: 19 COURSES
     Route: 065
     Dates: start: 201409, end: 201608
  12. DEXAMETHASONE. [Suspect]
     Active Substance: DEXAMETHASONE
     Dosage: DAY1
     Route: 048
     Dates: start: 20161229, end: 20161229
  13. ADRIAMYCIN [Suspect]
     Active Substance: DOXORUBICIN HYDROCHLORIDE
     Indication: PLASMA CELL MYELOMA
     Dosage: 3 COURSES
     Route: 065
     Dates: start: 200908
  14. ENDOXAN 50 MG, COMPRIM? ENROB? [Suspect]
     Active Substance: CYCLOPHOSPHAMIDE
     Indication: PLASMA CELL MYELOMA
     Dosage: DAY1 OF THE FIRST CYCLE
     Route: 048
     Dates: start: 20161125, end: 20161125
  15. DEXAMETHASONE. [Suspect]
     Active Substance: DEXAMETHASONE
     Dosage: DAY7
     Route: 048
     Dates: start: 20170104, end: 20170104
  16. REVLIMID [Suspect]
     Active Substance: LENALIDOMIDE
     Indication: PLASMA CELL MYELOMA
     Dosage: 5 COURSES
     Route: 065
     Dates: end: 201306
  17. POMALIDOMIDE [Suspect]
     Active Substance: POMALIDOMIDE
     Indication: PLASMA CELL MYELOMA
     Dosage: 19 COURSES
     Route: 065
     Dates: start: 201409, end: 201608
  18. ZELITREX [Concomitant]
     Active Substance: VALACYCLOVIR HYDROCHLORIDE
     Indication: PRODUCT USED FOR UNKNOWN INDICATION
     Route: 048
  19. CLAMOXYL [Concomitant]
     Active Substance: AMOXICILLIN\CLAVULANIC ACID
     Indication: PRODUCT USED FOR UNKNOWN INDICATION
     Route: 048
  20. ENDOXAN 50 MG, COMPRIM? ENROB? [Suspect]
     Active Substance: CYCLOPHOSPHAMIDE
     Dosage: DAY15
     Route: 048
     Dates: start: 20161210, end: 20161210
  21. MEDROL [Suspect]
     Active Substance: METHYLPREDNISOLONE
     Dosage: 1 COURSE
     Route: 065
     Dates: start: 20140522
  22. VELCADE [Suspect]
     Active Substance: BORTEZOMIB
     Dosage: 19 COURSES
     Route: 065
     Dates: start: 201409, end: 201608
  23. MELPHALAN [Suspect]
     Active Substance: MELPHALAN
     Indication: BONE MARROW CONDITIONING REGIMEN
     Dosage: CONDITIONING COURSE
     Route: 065
  24. SPIRIVA [Concomitant]
     Active Substance: TIOTROPIUM BROMIDE MONOHYDRATE
     Indication: PRODUCT USED FOR UNKNOWN INDICATION
     Dosage: DOSAGE FORM: POWDER FOR INHALATION IN CAPSULE
     Route: 048
  25. DOLIPRANE [Concomitant]
     Active Substance: ACETAMINOPHEN
     Indication: PRODUCT USED FOR UNKNOWN INDICATION
     Route: 048
  26. ZITHROMAX [Concomitant]
     Active Substance: AZITHROMYCIN DIHYDRATE
     Indication: PRODUCT USED FOR UNKNOWN INDICATION
     Route: 048
  27. ENDOXAN 50 MG, COMPRIM? ENROB? [Suspect]
     Active Substance: CYCLOPHOSPHAMIDE
     Dosage: DAY1
     Route: 048
     Dates: start: 20161229, end: 20161229
  28. VELCADE [Suspect]
     Active Substance: BORTEZOMIB
     Dosage: 8 COURSES
     Route: 065
     Dates: end: 201301
  29. GAMMANORM [Concomitant]
     Active Substance: HUMAN IMMUNOGLOBULIN G
     Indication: PRODUCT USED FOR UNKNOWN INDICATION
     Route: 058
  30. ENDOXAN 50 MG, COMPRIM? ENROB? [Suspect]
     Active Substance: CYCLOPHOSPHAMIDE
     Dosage: DAY15
     Route: 048
     Dates: start: 20170111, end: 20170111
  31. DEXAMETHASONE. [Suspect]
     Active Substance: DEXAMETHASONE
     Dosage: DAY1 OF THE FIRST CYCLE
     Route: 048
     Dates: start: 20161125
  32. REVLIMID [Suspect]
     Active Substance: LENALIDOMIDE
     Dosage: 3 COURSES
     Route: 065
     Dates: end: 201402
  33. BENDAMUSTINE [Suspect]
     Active Substance: BENDAMUSTINE
     Indication: PLASMA CELL MYELOMA
     Dosage: 1 COURSE
     Route: 065
     Dates: start: 20140522
  34. AB1010 [Suspect]
     Active Substance: MASITINIB
     Indication: PLASMA CELL MYELOMA
     Dosage: 8 COURSES
     Route: 065
     Dates: start: 201208
  35. ENDOXAN 50 MG, COMPRIM? ENROB? [Suspect]
     Active Substance: CYCLOPHOSPHAMIDE
     Dosage: DAY7
     Route: 048
     Dates: start: 20170104, end: 20170104
  36. CARFILZOMIB [Suspect]
     Active Substance: CARFILZOMIB
     Indication: PLASMA CELL MYELOMA
     Dosage: 20 MG/M2, 36MG/M2; DAY1 OF THE FIRST CYCLE
     Route: 042
     Dates: start: 20161125, end: 20161211
  37. BACTRIM [Concomitant]
     Active Substance: SULFAMETHOXAZOLE\TRIMETHOPRIM
     Indication: PRODUCT USED FOR UNKNOWN INDICATION
     Route: 048
  38. ENDOXAN 50 MG, COMPRIM? ENROB? [Suspect]
     Active Substance: CYCLOPHOSPHAMIDE
     Dosage: DAY 8
     Route: 048
     Dates: start: 20161203, end: 20161203
  39. DEXAMETHASONE. [Suspect]
     Active Substance: DEXAMETHASONE
     Indication: PLASMA CELL MYELOMA
     Dosage: 3 COURSES
     Route: 065
     Dates: end: 201402
  40. DEXAMETHASONE. [Suspect]
     Active Substance: DEXAMETHASONE
     Route: 065
     Dates: start: 20161114, end: 20161117
  41. DEXAMETHASONE. [Suspect]
     Active Substance: DEXAMETHASONE
     Dosage: 5 COURSES
     Route: 065
     Dates: end: 201306
  42. MEDROL [Suspect]
     Active Substance: METHYLPREDNISOLONE
     Indication: PLASMA CELL MYELOMA
     Dosage: 1 COURSE THEN 3 COURSES
     Route: 065
     Dates: start: 200908
  43. VELCADE [Suspect]
     Active Substance: BORTEZOMIB
     Indication: PLASMA CELL MYELOMA
     Dosage: 1 COURSE THEN 3 COURSES
     Route: 065
     Dates: start: 200908
  44. VELCADE [Suspect]
     Active Substance: BORTEZOMIB
     Dosage: 8 COURSES
     Route: 065
     Dates: start: 201208
  45. LOVENOX [Concomitant]
     Active Substance: ENOXAPARIN SODIUM
     Indication: PRODUCT USED FOR UNKNOWN INDICATION
     Route: 058

REACTIONS (11)
  - Cardiac failure chronic [Recovering/Resolving]
  - Ejection fraction decreased [Recovering/Resolving]
  - Vasodilatation [Recovered/Resolved]
  - Myeloma cast nephropathy [Unknown]
  - Dyspnoea [Recovering/Resolving]
  - Phlebitis [Unknown]
  - Productive cough [Recovering/Resolving]
  - Asthenia [Recovering/Resolving]
  - Rales [Recovering/Resolving]
  - N-terminal prohormone brain natriuretic peptide increased [Recovering/Resolving]
  - Acute kidney injury [Unknown]

NARRATIVE: CASE EVENT DATE: 201408
